FAERS Safety Report 8878567 (Version 1)
Quarter: 2012Q4

REPORT INFORMATION
  Report Type: 
  Country: US (occurrence: US)
  Receive Date: 20121025
  Receipt Date: 20121025
  Transmission Date: 20130627
  Serious: No
  Sender: FDA-Public Use
  Company Number: US-AMGEN-USASP2012021205

PATIENT
  Sex: Female

DRUGS (3)
  1. ENBREL [Suspect]
     Indication: RHEUMATOID ARTHRITIS
     Dosage: 50 mg, qwk
     Dates: start: 1999
  2. METHOTREXATE [Concomitant]
     Dosage: UNK
  3. CORTISONE [Concomitant]
     Dosage: UNK

REACTIONS (4)
  - Asthma [Unknown]
  - Oedema peripheral [Unknown]
  - Chest pain [Unknown]
  - Infection [Unknown]
